FAERS Safety Report 16291160 (Version 2)
Quarter: 2019Q3

REPORT INFORMATION
  Report Type: Spontaneous
  Country: US (occurrence: US)
  Receive Date: 20190509
  Receipt Date: 20190712
  Transmission Date: 20191004
  Serious: No
  Sender: FDA-Public Use
  Company Number: US-PFIZER INC-2019196981

PATIENT
  Age: 64 Year
  Sex: Female

DRUGS (33)
  1. XELJANZ XR [Suspect]
     Active Substance: TOFACITINIB CITRATE
     Dosage: 11 MG, 1X/DAY (EVERY MORNING)
     Dates: start: 2018, end: 20190305
  2. VITAMIN D3 [Concomitant]
     Active Substance: CHOLECALCIFEROL
     Dosage: 1000 MG, 2X/DAY
  3. LEVOTHYROXIN [Concomitant]
     Active Substance: LEVOTHYROXINE
     Dosage: 0.88 MG, 1X/DAY (EVERY MORNING)
  4. CLONIDINE [CLONIDINE HYDROCHLORIDE] [Concomitant]
     Dosage: 0.1 MG, 1X/DAY (EVERY EVENING)
  5. MAGNESIUM [Concomitant]
     Active Substance: MAGNESIUM
     Dosage: 500 MG, 1X/DAY
  6. FLUTICASONE PROPIONATE. [Concomitant]
     Active Substance: FLUTICASONE PROPIONATE
     Dosage: UNK UNK, DAILY, (50 MCG SPRAY ONE SPRAY INTO EACH NOSTRIL)
     Route: 055
  7. CICLOPIROX [CICLOPIROX OLAMINE] [Concomitant]
     Dosage: UNK UNK, DAILY (APPLY TO AFFECTED AREA EVERY DAY)
  8. VERAPAMIL [VERAPAMIL HYDROCHLORIDE] [Concomitant]
     Active Substance: VERAPAMIL HYDROCHLORIDE
     Dosage: 240 MG, 1X/DAY (EVERY EVENING)
  9. XANAX [Concomitant]
     Active Substance: ALPRAZOLAM
     Dosage: 0.25 MG, AS NEEDED
  10. OMEPRAZOLE [OMEPRAZOLE SODIUM] [Concomitant]
     Active Substance: OMEPRAZOLE SODIUM
     Dosage: 40 MG, 1X/DAY (EVERY MORNING)
  11. CALCIUM CITRATE + D [Concomitant]
     Active Substance: CALCIUM CITRATE\CHOLECALCIFEROL
     Dosage: 500 MG, 2X/DAY
  12. ESTROPIPATE. [Concomitant]
     Active Substance: ESTROPIPATE
     Dosage: UNK UNK, 1X/DAY (EVERY MORNING)
  13. LASIX [Concomitant]
     Active Substance: FUROSEMIDE
     Dosage: 40 MG, UNK (EVERY MORNING)
  14. PRAVASTATIN [PRAVASTATIN SODIUM] [Concomitant]
     Active Substance: PRAVASTATIN
     Dosage: 10 MG, ALTERNATE DAY (EVERY OTHER MORNING)
  15. IRON [Concomitant]
     Active Substance: IRON
     Dosage: 325 MG, 1X/DAY
  16. VITAMIN B12 [Concomitant]
     Active Substance: CYANOCOBALAMIN
     Dosage: 1000 UG, 1X/DAY
  17. CENTRUM SILVER [ASCORBIC ACID;BETACAROTENE;BIOTIN;CALCIUM;CHROMIUM;COL [Concomitant]
     Dosage: UNK UNK, 1X/DAY
  18. FISH OIL [Concomitant]
     Active Substance: FISH OIL
     Dosage: 1000 MG, 1X/DAY
  19. METHOTREXATE SODIUM. [Concomitant]
     Active Substance: METHOTREXATE SODIUM
     Dosage: 0.6 MG, WEEKLY
     Dates: start: 201812, end: 20190305
  20. CHLORHEXIDINE GLUCONATE. [Concomitant]
     Active Substance: CHLORHEXIDINE GLUCONATE
     Indication: MOUTH ULCERATION
     Dosage: 0.12 %, 2X/DAY (TWICE A DAY FOR SEVEN DAYS AS NEEDED FOR MOUTH ULCERS)
  21. MAALOX [ALGELDRATE;MAGNESIUM HYDROXIDE] [Concomitant]
     Active Substance: ALGELDRATE\MAGNESIUM HYDROXIDE
     Indication: MOUTH ULCERATION
     Dosage: UNK UNK, AS NEEDED
     Route: 048
  22. TRIAMCINOLONE [TRIAMCINOLONE ACETONIDE] [Concomitant]
     Indication: MOUTH ULCERATION
     Dosage: UNK UNK, 4X/DAY
  23. LOSARTAN [LOSARTAN POTASSIUM] [Concomitant]
     Dosage: 100 MG, 1X/DAY (EVERY MORNING)
  24. ZOLOFT [Concomitant]
     Active Substance: SERTRALINE HYDROCHLORIDE
     Dosage: 100 MG, 1X/DAY (EVERY MORNING)
  25. TRAMADOL HCL [Concomitant]
     Active Substance: TRAMADOL HYDROCHLORIDE
     Indication: PAIN
     Dosage: 50 MG, AS NEEDED
  26. TYLENOL [Concomitant]
     Active Substance: ACETAMINOPHEN
     Indication: PAIN
     Dosage: 2 DF, AS NEEDED
  27. XELJANZ XR [Suspect]
     Active Substance: TOFACITINIB CITRATE
     Indication: RHEUMATOID ARTHRITIS
     Dosage: 11 MG, UNK
  28. FOLIC ACID. [Concomitant]
     Active Substance: FOLIC ACID
     Dosage: 3 MG, 1X/DAY (EVERY MORNING)
  29. ASPARIN [Concomitant]
     Dosage: 325 MG, 1X/DAY (EVERY MORNING WITH BREAKFAST )
  30. CINNAMON. [Concomitant]
     Active Substance: CINNAMON
     Dosage: 1000 MG, 2X/DAY
  31. ALEVE [Concomitant]
     Active Substance: NAPROXEN SODIUM
     Indication: PAIN
     Dosage: 220 MG, AS NEEDED
  32. AZO CRANBERRY [Concomitant]
     Active Substance: DIETARY SUPPLEMENT
     Dosage: 1000 MG, DAILY
  33. NITROFURANTIN [Concomitant]
     Active Substance: NITROFURANTOIN
     Indication: URINARY TRACT INFECTION
     Dosage: 100 MG, 2X/DAY (WITH FOOD TWICE A DAY )

REACTIONS (1)
  - Mouth ulceration [Recovered/Resolved]

NARRATIVE: CASE EVENT DATE: 201812
